FAERS Safety Report 5809650-9 (Version None)
Quarter: 2008Q3

REPORT INFORMATION
  Report Type: 
  Country: None (occurrence: None)
  Receive Date: 20080715
  Receipt Date: 20080701
  Transmission Date: 20090109
  Serious: Yes (Hospitalization)
  Sender: FDA-Public Use
  Company Number: ES-ABBOTT-08P-144-0460543-00

PATIENT
  Age: 34 Year
  Sex: Female

DRUGS (3)
  1. HUMIRA [Suspect]
     Indication: CROHN'S DISEASE
     Route: 058
     Dates: start: 20080401, end: 20080612
  2. HUMIRA [Suspect]
     Route: 058
     Dates: start: 20080612
  3. METHOTREXATE [Suspect]
     Indication: CROHN'S DISEASE
     Route: 030
     Dates: start: 20080612, end: 20080630

REACTIONS (5)
  - ANAEMIA [None]
  - CROHN'S DISEASE [None]
  - GASTROENTERITIS SALMONELLA [None]
  - LEUKOPENIA [None]
  - NEUTROPENIA [None]
